FAERS Safety Report 14356533 (Version 1)
Quarter: 2018Q1

REPORT INFORMATION
  Report Type: Spontaneous
  Country: US (occurrence: US)
  Receive Date: 20180105
  Receipt Date: 20180105
  Transmission Date: 20180509
  Serious: No
  Sender: FDA-Public Use
  Company Number: US-ACTELION-A-US2018-165298

PATIENT
  Age: 88 Year
  Sex: Male

DRUGS (11)
  1. CARDURA [Concomitant]
     Active Substance: DOXAZOSIN MESYLATE
  2. PRAVASTATIN. [Concomitant]
     Active Substance: PRAVASTATIN
  3. TORSEMIDE. [Concomitant]
     Active Substance: TORSEMIDE
  4. FENOFIBRATE. [Concomitant]
     Active Substance: FENOFIBRATE
  5. VALCHLOR [Suspect]
     Active Substance: MECHLORETHAMINE
     Indication: MYCOSIS FUNGOIDES
     Dosage: UNK
     Route: 061
     Dates: start: 20151202
  6. ALLOPURINOL. [Concomitant]
     Active Substance: ALLOPURINOL
  7. AMIODARONE [Concomitant]
     Active Substance: AMIODARONE
  8. CALCITRIOL. [Concomitant]
     Active Substance: CALCITRIOL
  9. NORVASC [Concomitant]
     Active Substance: AMLODIPINE BESYLATE
  10. GLIMEPIRIDE. [Concomitant]
     Active Substance: GLIMEPIRIDE
  11. LANTUS [Concomitant]
     Active Substance: INSULIN GLARGINE

REACTIONS (2)
  - Drug dose omission [Unknown]
  - Thyroid function test abnormal [Unknown]

NARRATIVE: CASE EVENT DATE: 20171225
